FAERS Safety Report 8473897-6 (Version None)
Quarter: 2012Q2

REPORT INFORMATION
  Report Type: 
  Country: None (occurrence: None)
  Receive Date: 20120628
  Receipt Date: 20120120
  Transmission Date: 20120825
  Serious: Yes (Death)
  Sender: FDA-Public Use
  Company Number: US-MYLANLABS-2012S1001506

PATIENT
  Age: 31 Year
  Sex: Male

DRUGS (5)
  1. LISINOPRIL [Concomitant]
     Route: 048
  2. OMEPRAZOLE [Concomitant]
     Route: 048
  3. RISPERIDONE [Concomitant]
     Route: 048
  4. ATIVAN [Concomitant]
     Route: 048
  5. CLOZAPINE [Suspect]
     Route: 048

REACTIONS (1)
  - DEATH [None]
